FAERS Safety Report 10586796 (Version 1)
Quarter: 2014Q4

REPORT INFORMATION
  Report Type: Spontaneous
  Country: US (occurrence: None)
  Receive Date: 20141114
  Receipt Date: 20141114
  Transmission Date: 20150529
  Serious: No
  Sender: FDA-Public Use
  Company Number: None

PATIENT
  Age: 22 Year
  Sex: Male
  Weight: 81.65 kg

DRUGS (1)
  1. OXYCONTIN [Suspect]
     Active Substance: OXYCODONE HYDROCHLORIDE
     Indication: PAIN
     Dosage: 1 PILL
     Route: 048

REACTIONS (4)
  - Drug effect delayed [None]
  - Product formulation issue [None]
  - Foreign body [None]
  - Drug effect decreased [None]

NARRATIVE: CASE EVENT DATE: 20080710
